FAERS Safety Report 23803834 (Version 1)
Quarter: 2024Q2

REPORT INFORMATION
  Report Type: Spontaneous
  Country: US (occurrence: None)
  Receive Date: 20240430
  Receipt Date: 20240430
  Transmission Date: 20240716
  Serious: Yes (Hospitalization, Disabling)
  Sender: FDA-Public Use
  Company Number: None

PATIENT
  Age: 32 Year
  Sex: Female
  Weight: 53.1 kg

DRUGS (6)
  1. VILAZODONE [Suspect]
     Active Substance: VILAZODONE
     Indication: Depression
     Dosage: OTHER QUANTITY : 1 TABLET(S);?FREQUENCY : DAILY;?
     Route: 048
     Dates: start: 20180101, end: 20230515
  2. TRAZODONE [Suspect]
     Active Substance: TRAZODONE HYDROCHLORIDE
     Indication: Insomnia
     Dosage: OTHER QUANTITY : 1 TABLET(S);?FREQUENCY : AT BEDTIME;?
     Route: 048
     Dates: start: 20180101, end: 20230325
  3. VILAZODONE [Concomitant]
     Active Substance: VILAZODONE
  4. LUNESTA [Concomitant]
     Active Substance: ESZOPICLONE
  5. MELATONIN [Concomitant]
     Active Substance: MELATONIN
  6. MAGNESIUM [Concomitant]

REACTIONS (18)
  - Hypersensitivity [None]
  - Maternal exposure timing unspecified [None]
  - Abortion spontaneous [None]
  - Akathisia [None]
  - Blindness [None]
  - Tachycardia [None]
  - Vertigo [None]
  - Suicidal ideation [None]
  - Neuropathy peripheral [None]
  - Impaired gastric emptying [None]
  - Tremor [None]
  - Chest pain [None]
  - Dyspnoea [None]
  - Autonomic nervous system imbalance [None]
  - Amnesia [None]
  - Amnesia [None]
  - Cognitive disorder [None]
  - Withdrawal syndrome [None]

NARRATIVE: CASE EVENT DATE: 20230325
